FAERS Safety Report 19765396 (Version 1)
Quarter: 2021Q3

REPORT INFORMATION
  Report Type: Report from Study
  Country: None (occurrence: US)
  Receive Date: 20210831
  Receipt Date: 20210831
  Transmission Date: 20211014
  Serious: Yes (Hospitalization)
  Sender: FDA-Public Use
  Company Number: US-ABBVIE-21K-163-3827300-00

PATIENT
  Age: 39 Year
  Sex: Female
  Weight: 140.74 kg

DRUGS (11)
  1. VITAMIN D3 [Concomitant]
     Active Substance: CHOLECALCIFEROL
     Indication: VITAMIN SUPPLEMENTATION
  2. COVID?19 VACCINE [Concomitant]
     Indication: COVID-19 IMMUNISATION
     Dosage: MODERNA
     Route: 030
     Dates: start: 20210212, end: 20210212
  3. COVID?19 VACCINE [Concomitant]
     Dosage: MODERNA
     Route: 030
     Dates: start: 20210818, end: 20210818
  4. DOCOSAHEXAENOIC ACID [Concomitant]
     Active Substance: DOCONEXENT
     Indication: NUTRITIONAL SUPPLEMENTATION
  5. SULINDAC. [Concomitant]
     Active Substance: SULINDAC
     Indication: PSORIATIC ARTHROPATHY
  6. BUSPIRONE [Concomitant]
     Active Substance: BUSPIRONE HYDROCHLORIDE
     Indication: ANXIETY
  7. FLORASTOR [Concomitant]
     Active Substance: SACCHAROMYCES CEREVISIAE
     Indication: PROBIOTIC THERAPY
  8. COVID?19 VACCINE [Concomitant]
     Dosage: MODERNA
     Route: 030
     Dates: start: 20210313, end: 20210313
  9. SKYRIZI [Suspect]
     Active Substance: RISANKIZUMAB-RZAA
     Indication: PSORIASIS
     Route: 058
     Dates: start: 20200918
  10. SERTRALINE [Concomitant]
     Active Substance: SERTRALINE HYDROCHLORIDE
     Indication: DEPRESSION
  11. IRON SUPPLEMENT [Concomitant]
     Active Substance: IRON
     Indication: MINERAL SUPPLEMENTATION

REACTIONS (12)
  - Atypical pneumonia [Recovered/Resolved]
  - Pain [Recovered/Resolved]
  - Cardiomegaly [Unknown]
  - Lung infiltration [Unknown]
  - Weight increased [Unknown]
  - Blood lactic acid decreased [Unknown]
  - Lung disorder [Unknown]
  - Blood sodium decreased [Unknown]
  - White blood cell count increased [Unknown]
  - Blood glucose abnormal [Unknown]
  - Blood urine present [Unknown]
  - Calcium ionised decreased [Unknown]

NARRATIVE: CASE EVENT DATE: 20210127
